FAERS Safety Report 4756552-5 (Version None)
Quarter: 2005Q3

REPORT INFORMATION
  Report Type: 
  Country: None (occurrence: None)
  Receive Date: 20050826
  Receipt Date: 20050216
  Transmission Date: 20060218
  Serious: Yes (Death)
  Sender: FDA-Public Use
  Company Number: USA-2005-0018936

PATIENT
  Age: 47 Year
  Sex: Male

DRUGS (9)
  1. OXYCONTIN [Suspect]
     Indication: PAIN
     Dosage: 160 MG, BID
  2. ALCOHOL (ETHANOL) [Suspect]
  3. NEURONTIN [Concomitant]
  4. AMITRIPTYLINE HCL [Concomitant]
  5. ALPRAZOLAM [Concomitant]
  6. VALIUM [Concomitant]
  7. FLOMAX [Concomitant]
  8. ZOLOFT [Concomitant]
  9. ZYPREXA [Concomitant]

REACTIONS (2)
  - OVERDOSE [None]
  - POLYSUBSTANCE ABUSE [None]
